FAERS Safety Report 15645043 (Version 1)
Quarter: 2018Q4

REPORT INFORMATION
  Report Type: Report from Study
  Country: DE (occurrence: DE)
  Receive Date: 20181121
  Receipt Date: 20181121
  Transmission Date: 20190205
  Serious: Yes (Other)
  Sender: FDA-Public Use
  Company Number: DE-SHIRE-DE201844289

PATIENT

DRUGS (2)
  1. TEDUGLUTIDE [Suspect]
     Active Substance: TEDUGLUTIDE
     Indication: CROHN^S DISEASE
     Dosage: UNK
  2. TEDUGLUTIDE [Suspect]
     Active Substance: TEDUGLUTIDE
     Indication: SHORT-BOWEL SYNDROME
     Dosage: 0.24 ML, 1X/DAY:QD
     Route: 058
     Dates: start: 20181017

REACTIONS (7)
  - Abnormal faeces [Unknown]
  - Menorrhagia [Recovered/Resolved]
  - Migraine [Recovered/Resolved]
  - Abdominal pain [Unknown]
  - Injection site infection [Recovered/Resolved]
  - Flatulence [Recovering/Resolving]
  - Haematochezia [Unknown]

NARRATIVE: CASE EVENT DATE: 20181104
